FAERS Safety Report 5872026-2 (Version None)
Quarter: 2008Q3

REPORT INFORMATION
  Report Type: 
  Country: None (occurrence: None)
  Receive Date: 20080902
  Receipt Date: 20080103
  Transmission Date: 20090109
  Serious: Yes (Hospitalization)
  Sender: FDA-Public Use
  Company Number: 2008S1000064

PATIENT
  Age: 73 Year
  Sex: Male

DRUGS (6)
  1. PHOSPHOSODA FLAVOR NOT SPECIFIED (SODIUM PHOSPHATE DIBASIC/SODIUM PHOS [Suspect]
     Indication: RECTAL CANCER
     Dosage: 45 ML; X1 PO, 45 ML; 169; PO; X1
     Route: 048
     Dates: start: 20071004, end: 20071004
  2. MOLSIDOMINA (MOLSIDOMINE) [Concomitant]
  3. BISOCARD /POL/ (BISOPROLOL) [Concomitant]
  4. HYDROXYZINE [Concomitant]
  5. ZOXON (DOXAZOSIN MESILATE) [Concomitant]
  6. SIMVASTATIN [Concomitant]

REACTIONS (1)
  - SYNCOPE [None]
